FAERS Safety Report 9129389 (Version 2)
Quarter: 2013Q2

REPORT INFORMATION
  Report Type: Spontaneous
  Country: US (occurrence: US)
  Receive Date: 20130125
  Receipt Date: 20130403
  Transmission Date: 20140414
  Serious: Yes (Other)
  Sender: FDA-Public Use
  Company Number: US-PURDUE-USA-2013-0097752

PATIENT
  Sex: Male

DRUGS (3)
  1. OXYCONTIN (NDA 22-272) [Suspect]
     Indication: PAIN
     Dosage: 80 MG, TID
     Route: 048
     Dates: start: 2007, end: 20130116
  2. OXYCODONE HCL IMMEDIATE RELEASE (91-490) [Concomitant]
     Indication: BREAKTHROUGH PAIN
     Dosage: 30 MG, Q4- 6H PRN
     Route: 048
  3. NORCO [Suspect]
     Indication: PAIN
     Dosage: 10 MG, SEE TEXT
     Route: 048

REACTIONS (8)
  - Blood pressure systolic increased [Unknown]
  - Arrhythmia [Unknown]
  - Drug dependence [Unknown]
  - Fall [Unknown]
  - Mobility decreased [Unknown]
  - Lacrimation increased [Unknown]
  - Pain [Unknown]
  - Dyskinesia [Unknown]
